FAERS Safety Report 16691089 (Version 2)
Quarter: 2019Q3

REPORT INFORMATION
  Report Type: Spontaneous
  Country: US (occurrence: US)
  Receive Date: 20190812
  Receipt Date: 20190925
  Transmission Date: 20191004
  Serious: No
  Sender: FDA-Public Use
  Company Number: US-ASTRAZENECA-2019SF03194

PATIENT
  Age: 24202 Day
  Sex: Female
  Weight: 77.6 kg

DRUGS (3)
  1. BYDUREON BCISE [Suspect]
     Active Substance: EXENATIDE
     Indication: TYPE 2 DIABETES MELLITUS
     Route: 058
  2. BYDUREON BCISE [Suspect]
     Active Substance: EXENATIDE
     Indication: WEIGHT DECREASED
     Route: 058
  3. OVER-THE-COUNTER CORTISONE CREAM [Concomitant]
     Indication: PRURITUS
     Route: 061

REACTIONS (4)
  - Circumstance or information capable of leading to medication error [Unknown]
  - Injection site pruritus [Recovered/Resolved]
  - Therapeutic response unexpected [Unknown]
  - Device malfunction [Unknown]

NARRATIVE: CASE EVENT DATE: 20190708
